FAERS Safety Report 5663402-1 (Version None)
Quarter: 2008Q1

REPORT INFORMATION
  Report Type: 
  Country: None (occurrence: None)
  Receive Date: 20080307
  Receipt Date: 20070618
  Transmission Date: 20080703
  Serious: Yes (Other)
  Sender: FDA-Public Use
  Company Number: 2008P1000036

PATIENT
  Age: 0 Year
  Sex: Male

DRUGS (4)
  1. BUSULFAN (BUSULFAN) [Suspect]
     Indication: STEM CELL TRANSPLANT
     Dosage: 1.05 ML; 2.0 ML; 2.4 ML; 0.6 ML
     Dates: start: 20070521, end: 20070521
  2. BUSULFAN (BUSULFAN) [Suspect]
     Indication: STEM CELL TRANSPLANT
     Dosage: 1.05 ML; 2.0 ML; 2.4 ML; 0.6 ML
     Dates: start: 20070522, end: 20070522
  3. BUSULFAN (BUSULFAN) [Suspect]
     Indication: STEM CELL TRANSPLANT
     Dosage: 1.05 ML; 2.0 ML; 2.4 ML; 0.6 ML
     Dates: start: 20070523, end: 20070524
  4. BUSULFAN (BUSULFAN) [Suspect]
     Indication: STEM CELL TRANSPLANT
     Dosage: 1.05 ML; 2.0 ML; 2.4 ML; 0.6 ML
     Dates: start: 20070525, end: 20070525

REACTIONS (15)
  - ACUTE GRAFT VERSUS HOST DISEASE [None]
  - ANAEMIA [None]
  - ANOREXIA [None]
  - CYTOMEGALOVIRUS VIRAEMIA [None]
  - DIARRHOEA [None]
  - GASTRIC HAEMORRHAGE [None]
  - LYMPHOCYTE COUNT DECREASED [None]
  - MALAISE [None]
  - NAUSEA [None]
  - NEUTROPHIL COUNT DECREASED [None]
  - PLATELET COUNT DECREASED [None]
  - SEPSIS [None]
  - STOMATITIS [None]
  - VOMITING [None]
  - WHITE BLOOD CELL COUNT DECREASED [None]
